FAERS Safety Report 16528869 (Version 2)
Quarter: 2019Q3

REPORT INFORMATION
  Report Type: Spontaneous
  Country: FR (occurrence: FR)
  Receive Date: 20190703
  Receipt Date: 20190722
  Transmission Date: 20191004
  Serious: No
  Sender: FDA-Public Use
  Company Number: FR-TAKEDA-2019TUS041018

PATIENT
  Age: 70 Year
  Sex: Female

DRUGS (1)
  1. BRINTELLIX [Suspect]
     Active Substance: VORTIOXETINE HYDROBROMIDE
     Indication: NEURALGIA
     Dosage: 5 MILLIGRAM, QD
     Route: 048
     Dates: start: 201905

REACTIONS (6)
  - Thrombophlebitis superficial [Unknown]
  - Ecchymosis [Unknown]
  - Haematoma [Unknown]
  - Hot flush [Unknown]
  - Product use in unapproved indication [Unknown]
  - Haemangioma [Unknown]

NARRATIVE: CASE EVENT DATE: 20190614
